FAERS Safety Report 8881788 (Version 2)
Quarter: 2012Q4

REPORT INFORMATION
  Report Type: 
  Country: US (occurrence: US)
  Receive Date: 20121105
  Receipt Date: 20121112
  Transmission Date: 20130627
  Serious: Yes (Hospitalization)
  Sender: FDA-Public Use
  Company Number: US-ACCORD-015174

PATIENT
  Age: 51 Year
  Sex: Female

DRUGS (4)
  1. LEUCOVORIN [Suspect]
     Indication: DUODENAL CARCINOMA RECURRENT
     Route: 042
  2. 5 FLUOROURACIL [Suspect]
     Indication: DUODENAL CARCINOMA RECURRENT
     Route: 042
  3. IRINOTECAN HYDROCHLORIDE [Suspect]
     Indication: DUODENAL CARCINOMA RECURRENT
     Route: 042
  4. OXALIPLATIN [Suspect]
     Indication: DUODENAL CARCINOMA RECURRENT
     Route: 042

REACTIONS (9)
  - Multi-organ failure [Recovered/Resolved]
  - Hyperammonaemia [Recovered/Resolved]
  - Leukoencephalopathy [Recovered/Resolved]
  - Pancytopenia [Recovered/Resolved]
  - Febrile neutropenia [Recovered/Resolved]
  - Pulmonary oedema [Recovered/Resolved]
  - Pleural effusion [Recovered/Resolved]
  - Intracardiac thrombus [Recovered/Resolved]
  - Off label use [Unknown]
